FAERS Safety Report 19373733 (Version 1)
Quarter: 2021Q2

REPORT INFORMATION
  Report Type: Spontaneous
  Country: US (occurrence: US)
  Receive Date: 20210604
  Receipt Date: 20210604
  Transmission Date: 20210717
  Serious: No
  Sender: FDA-Public Use
  Company Number: None

PATIENT
  Age: 48 Year
  Sex: Male
  Weight: 153 kg

DRUGS (1)
  1. ERENUMAB?AOOE (ERENUMAB?AOOE 70MG/L AUTOINJECTOR, 1ML) [Suspect]
     Active Substance: ERENUMAB-AOOE
     Indication: MIGRAINE
     Route: 058
     Dates: start: 20210301, end: 20210322

REACTIONS (1)
  - Constipation [None]

NARRATIVE: CASE EVENT DATE: 20210322
